FAERS Safety Report 6996606-6 (Version None)
Quarter: 2010Q3

REPORT INFORMATION
  Report Type: 
  Country: None (occurrence: None)
  Receive Date: 20100918
  Receipt Date: 20090526
  Transmission Date: 20110219
  Serious: No
  Sender: FDA-Public Use
  Company Number: US-WYE-H09489009

PATIENT
  Sex: Female

DRUGS (2)
  1. EFFEXOR XR [Suspect]
     Route: 048
     Dates: end: 20090501
  2. EFFEXOR XR [Suspect]
     Route: 048
     Dates: start: 20090501, end: 20090522

REACTIONS (7)
  - ASTHENIA [None]
  - CONSTIPATION [None]
  - DRUG WITHDRAWAL SYNDROME [None]
  - FATIGUE [None]
  - INTENTIONAL DRUG MISUSE [None]
  - NAUSEA [None]
  - UNEVALUABLE EVENT [None]
